FAERS Safety Report 24042889 (Version 3)
Quarter: 2024Q3

REPORT INFORMATION
  Report Type: Spontaneous
  Country: FR (occurrence: FR)
  Receive Date: 20240702
  Receipt Date: 20240723
  Transmission Date: 20241017
  Serious: Yes (Life-Threatening)
  Sender: PFIZER
  Company Number: None

PATIENT
  Age: 77 Year
  Sex: Male

DRUGS (12)
  1. FLUCONAZOLE [Interacting]
     Active Substance: FLUCONAZOLE
     Indication: Fungal infection
     Dosage: 100 MG, 1X/DAY
     Route: 048
     Dates: start: 20240430
  2. OXYCODONE HYDROCHLORIDE [Interacting]
     Active Substance: OXYCODONE HYDROCHLORIDE
     Indication: Pain
     Dosage: FREQ:1 H;
     Route: 042
     Dates: start: 20240424, end: 20240504
  3. MIDAZOLAM [Interacting]
     Active Substance: MIDAZOLAM
     Indication: Anxiety
     Dosage: FREQ:1 H;
     Route: 042
     Dates: start: 20240427
  4. CHLORPROMAZINE HYDROCHLORIDE [Interacting]
     Active Substance: CHLORPROMAZINE HYDROCHLORIDE
     Dosage: 1 DF, 1X/DAY
     Route: 042
     Dates: start: 20240424, end: 20240503
  5. KETAMINE [Concomitant]
     Active Substance: KETAMINE
     Dosage: 50 MG, 1X/DAY
     Route: 042
     Dates: start: 20240425, end: 20240502
  6. DEPAKOTE [Concomitant]
     Active Substance: DIVALPROEX SODIUM
     Dosage: 1 G, 1X/DAY
     Route: 048
     Dates: start: 20240502
  7. ENOXAPARIN SODIUM [Concomitant]
     Active Substance: ENOXAPARIN SODIUM
     Dosage: 4000 IU, 1X/DAY
     Route: 058
     Dates: start: 20240426
  8. TROPATEPINE HYDROCHLORIDE [Concomitant]
     Active Substance: TROPATEPINE HYDROCHLORIDE
     Dosage: 1 DF, 1X/DAY
     Route: 048
     Dates: start: 20240502
  9. MORPHINE [Concomitant]
     Active Substance: MORPHINE
     Dosage: 6 MG, 1X/DAY
     Route: 042
     Dates: start: 20240423, end: 20240423
  10. ZYPREXA [Concomitant]
     Active Substance: OLANZAPINE
     Dosage: 1 DF, 1X/DAY
     Route: 048
     Dates: start: 20240502
  11. PIPERACILLIN SODIUM\TAZOBACTAM SODIUM [Concomitant]
     Active Substance: PIPERACILLIN SODIUM\TAZOBACTAM SODIUM
     Dosage: 12 G, 1X/DAY
     Route: 042
     Dates: start: 20240424
  12. BIMATOPROST\TIMOLOL [Concomitant]
     Active Substance: BIMATOPROST\TIMOLOL
     Dosage: 2 DF, 1X/DAY
     Route: 047
     Dates: start: 20240503

REACTIONS (1)
  - Drug interaction [Not Recovered/Not Resolved]

NARRATIVE: CASE EVENT DATE: 20240430
